FAERS Safety Report 14299303 (Version 1)
Quarter: 2017Q4

REPORT INFORMATION
  Report Type: Spontaneous
  Country: ES (occurrence: ES)
  Receive Date: 20171219
  Receipt Date: 20171219
  Transmission Date: 20180321
  Serious: Yes (Other)
  Sender: FDA-Public Use
  Company Number: ES-CONCORDIA PHARMACEUTICALS INC.-E2B_00008851

PATIENT
  Age: 87 Year
  Sex: Female

DRUGS (1)
  1. DIGOXIN. [Suspect]
     Active Substance: DIGOXIN
     Indication: CARDIAC FAILURE CONGESTIVE
     Dates: start: 20171111, end: 20171113

REACTIONS (4)
  - Incorrect dosage administered [Recovered/Resolved]
  - Nausea [Unknown]
  - Toxicity to various agents [Unknown]
  - Medication monitoring error [Recovered/Resolved]

NARRATIVE: CASE EVENT DATE: 20171111
